FAERS Safety Report 21760809 (Version 1)
Quarter: 2022Q4

REPORT INFORMATION
  Report Type: Spontaneous
  Country: US (occurrence: None)
  Receive Date: 20221220
  Receipt Date: 20221220
  Transmission Date: 20230113
  Serious: Yes (Other)
  Sender: FDA-Public Use
  Company Number: None

PATIENT
  Age: 43 Year
  Sex: Male
  Weight: 74.84 kg

DRUGS (1)
  1. BUPRENORPHINE HYDROCHLORIDE\NALOXONE HYDROCHLORIDE [Suspect]
     Active Substance: BUPRENORPHINE HYDROCHLORIDE\NALOXONE HYDROCHLORIDE
     Dosage: OTHER QUANTITY : 3 AN;?FREQUENCY : DAILY;?
     Route: 060
     Dates: start: 20221003, end: 20221219

REACTIONS (6)
  - Nausea [None]
  - Vomiting [None]
  - Vision blurred [None]
  - Pain in extremity [None]
  - Erectile dysfunction [None]
  - Drug hypersensitivity [None]

NARRATIVE: CASE EVENT DATE: 20221205
